FAERS Safety Report 14219335 (Version 1)
Quarter: 2017Q4

REPORT INFORMATION
  Report Type: Spontaneous
  Country: US (occurrence: US)
  Receive Date: 20171123
  Receipt Date: 20171123
  Transmission Date: 20180321
  Serious: No
  Sender: FDA-Public Use
  Company Number: US-JNJFOC-20170908572

PATIENT
  Sex: Female
  Weight: 88.45 kg

DRUGS (10)
  1. FENTANYL TRANSDERMAL SYSTEM [Suspect]
     Active Substance: FENTANYL
     Indication: PAIN
     Route: 062
     Dates: start: 20170224
  2. FENTANYL TRANSDERMAL SYSTEM [Suspect]
     Active Substance: FENTANYL
     Indication: PAIN
     Route: 062
     Dates: start: 201206, end: 201611
  3. FENTANYL TRANSDERMAL SYSTEM [Suspect]
     Active Substance: FENTANYL
     Indication: FIBROUS DYSPLASIA OF BONE
     Route: 062
     Dates: start: 201206, end: 201611
  4. FENTANYL TRANSDERMAL SYSTEM [Suspect]
     Active Substance: FENTANYL
     Indication: FIBROUS DYSPLASIA OF BONE
     Route: 062
     Dates: start: 201611, end: 20170224
  5. SOMA [Concomitant]
     Active Substance: CARISOPRODOL
     Dosage: AS NECESSARY
     Route: 065
  6. FENTANYL TRANSDERMAL SYSTEM [Suspect]
     Active Substance: FENTANYL
     Indication: FIBROUS DYSPLASIA OF BONE
     Route: 062
     Dates: start: 20170224
  7. FENTANYL TRANSDERMAL SYSTEM [Suspect]
     Active Substance: FENTANYL
     Indication: PAIN
     Route: 062
     Dates: start: 201611, end: 20170224
  8. PHENERGAN [Concomitant]
     Active Substance: PROMETHAZINE HYDROCHLORIDE
     Indication: NAUSEA
     Route: 065
  9. BENTYL [Concomitant]
     Active Substance: DICYCLOMINE HYDROCHLORIDE
     Indication: ABDOMINAL RIGIDITY
     Route: 065
  10. OXYCODONE [Concomitant]
     Active Substance: OXYCODONE
     Indication: BREAKTHROUGH PAIN
     Dosage: AS NECESSARY (ONCE IN 8 HOURS)
     Route: 065

REACTIONS (2)
  - Drug effect decreased [Unknown]
  - Withdrawal syndrome [Unknown]
